FAERS Safety Report 7689230-3 (Version None)
Quarter: 2011Q3

REPORT INFORMATION
  Report Type: 
  Country: None (occurrence: None)
  Receive Date: 20110817
  Receipt Date: 20110809
  Transmission Date: 20111222
  Serious: Yes (Hospitalization)
  Sender: FDA-Public Use
  Company Number: US-B.I. PHARMACEUTICALS,INC./RIDGEFIELD-2011-BP-18020BP

PATIENT
  Age: 85 Year
  Sex: Female
  Weight: 82.7 kg

DRUGS (7)
  1. ZOCOR [Concomitant]
  2. TEKTURNA [Concomitant]
     Dosage: 300 MG
  3. PRADAXA [Suspect]
     Indication: ATRIAL FIBRILLATION
     Dosage: 300 MG
     Dates: start: 20110401, end: 20110704
  4. DIOVAN [Concomitant]
  5. TOPROL-XL [Concomitant]
     Dosage: 100 MG
  6. LASIX [Concomitant]
     Dosage: 40 MG
  7. PLAVIX [Suspect]

REACTIONS (2)
  - FALL [None]
  - SUBARACHNOID HAEMORRHAGE [None]
